FAERS Safety Report 18582065 (Version 3)
Quarter: 2021Q3

REPORT INFORMATION
  Report Type: Report from Study
  Country: DE (occurrence: DE)
  Receive Date: 20201204
  Receipt Date: 20210825
  Transmission Date: 20211014
  Serious: Yes (Hospitalization, Other)
  Sender: FDA-Public Use
  Company Number: DE-TAKEDA-DE202028404

PATIENT
  Age: 50 Year
  Sex: Male

DRUGS (61)
  1. TEDUGLUTIDE [Suspect]
     Active Substance: TEDUGLUTIDE
     Dosage: 3.8 MILLIGRAM, OTHER (7 DOSES PER WEEK)
     Route: 065
     Dates: start: 201904, end: 20190822
  2. TEDUGLUTIDE [Suspect]
     Active Substance: TEDUGLUTIDE
     Dosage: 2 MILLIGRAM, OTHER (7 DOSES PER WEEK)
     Route: 065
     Dates: start: 20190830, end: 20191014
  3. TEDUGLUTIDE [Suspect]
     Active Substance: TEDUGLUTIDE
     Dosage: 2 MILLIGRAM, OTHER (7 DOSES PER WEEK)
     Route: 065
     Dates: start: 20190830, end: 20191014
  4. TEDUGLUTIDE [Suspect]
     Active Substance: TEDUGLUTIDE
     Dosage: 3.5 MILLIGRAM, OTHER (7 DOSES PER WEEK)
     Route: 065
     Dates: start: 20191028, end: 20200214
  5. TEDUGLUTIDE [Suspect]
     Active Substance: TEDUGLUTIDE
     Dosage: 3.2 MILLIGRAM, OTHER (4 DOSES PER WEEK)
     Route: 065
     Dates: start: 20200810, end: 20200819
  6. TEDUGLUTIDE [Suspect]
     Active Substance: TEDUGLUTIDE
     Dosage: 3.2 MILLIGRAM, QD
     Route: 065
     Dates: start: 20210412
  7. TEDUGLUTIDE [Suspect]
     Active Substance: TEDUGLUTIDE
     Indication: SHORT-BOWEL SYNDROME
     Dosage: 4.25 MILLIGRAM, OTHER (7 DOSES PER WEEK)
     Route: 065
     Dates: start: 20190111, end: 20190310
  8. TEDUGLUTIDE [Suspect]
     Active Substance: TEDUGLUTIDE
     Dosage: 4 MILLIGRAM, OTHER (7 DOSES PER WEEK)
     Route: 065
     Dates: start: 20190311
  9. TEDUGLUTIDE [Suspect]
     Active Substance: TEDUGLUTIDE
     Dosage: 3.8 MILLIGRAM, OTHER (7 DOSES PER WEEK)
     Route: 065
     Dates: start: 201904, end: 20190822
  10. TEDUGLUTIDE [Suspect]
     Active Substance: TEDUGLUTIDE
     Dosage: 3.8 MILLIGRAM, OTHER (4 DOSES PER WEEK)
     Route: 065
     Dates: start: 20190823, end: 20190829
  11. TEDUGLUTIDE [Suspect]
     Active Substance: TEDUGLUTIDE
     Dosage: 2 MILLIGRAM, OTHER (7 DOSES PER WEEK)
     Route: 065
     Dates: start: 20190830, end: 20191014
  12. TEDUGLUTIDE [Suspect]
     Active Substance: TEDUGLUTIDE
     Dosage: 3.5 MILLIGRAM, OTHER (7 DOSES PER WEEK)
     Route: 065
     Dates: start: 20191028, end: 20200214
  13. TEDUGLUTIDE [Suspect]
     Active Substance: TEDUGLUTIDE
     Dosage: 2.6 MILLIGRAM, QD
     Route: 065
     Dates: start: 20200820, end: 202010
  14. TEDUGLUTIDE [Suspect]
     Active Substance: TEDUGLUTIDE
     Dosage: 3.2 MILLIGRAM, QD
     Route: 065
     Dates: start: 202010, end: 20210410
  15. IBUPROFEN. [Concomitant]
     Active Substance: IBUPROFEN
     Dosage: 600 MILLIGRAM, QD
     Route: 048
     Dates: start: 201907
  16. TEDUGLUTIDE [Suspect]
     Active Substance: TEDUGLUTIDE
     Dosage: 2.5 MILLIGRAM, OTHER (7 DOSES PER WEEK)
     Route: 065
     Dates: start: 20191015, end: 20191027
  17. TEDUGLUTIDE [Suspect]
     Active Substance: TEDUGLUTIDE
     Dosage: 3.2 MILLIGRAM, OTHER (7 DOSES PER WEEK)
     Route: 065
     Dates: start: 20200218
  18. TEDUGLUTIDE [Suspect]
     Active Substance: TEDUGLUTIDE
     Dosage: 3.2 MILLIGRAM, OTHER (4 DOSES PER WEEK)
     Route: 065
     Dates: start: 20200810, end: 20200819
  19. TEDUGLUTIDE [Suspect]
     Active Substance: TEDUGLUTIDE
     Dosage: 2.6 MILLIGRAM, QD
     Route: 065
     Dates: start: 20200820, end: 202010
  20. KALINOR RETARD P [Concomitant]
     Active Substance: POTASSIUM CHLORIDE
     Indication: PRODUCT USED FOR UNKNOWN INDICATION
     Dosage: 600 MILLIGRAM, TID
     Route: 048
  21. SELENASE [SELENIDE SODIUM] [Concomitant]
     Dosage: 100 MICROGRAM, QD
     Route: 048
     Dates: start: 20200910
  22. SELENASE T [Concomitant]
     Indication: SELENIUM DEFICIENCY
  23. NEUROBION FORTE [Concomitant]
     Active Substance: CYANOCOBALAMIN\PYRIDOXINE HYDROCHLORIDE\THIAMINE DISULFIDE
     Indication: VITAMIN B6 DEFICIENCY
     Dosage: 82.27 MILLIGRAM, QD
     Route: 048
     Dates: start: 20210508
  24. CEPHALEXIN. [Concomitant]
     Active Substance: CEPHALEXIN
     Indication: WOUND
     Dosage: 1000 MILLIGRAM, QD
     Route: 048
     Dates: start: 20210107, end: 20210115
  25. TEDUGLUTIDE [Suspect]
     Active Substance: TEDUGLUTIDE
     Dosage: 3.8 MILLIGRAM, OTHER (4 DOSES PER WEEK)
     Route: 065
     Dates: start: 20190823, end: 20190829
  26. TEDUGLUTIDE [Suspect]
     Active Substance: TEDUGLUTIDE
     Dosage: 2.5 MILLIGRAM, OTHER (7 DOSES PER WEEK)
     Route: 065
     Dates: start: 20191015, end: 20191027
  27. TEDUGLUTIDE [Suspect]
     Active Substance: TEDUGLUTIDE
     Dosage: 2.5 MILLIGRAM, OTHER (7 DOSES PER WEEK)
     Route: 065
     Dates: start: 20191015, end: 20191027
  28. TEDUGLUTIDE [Suspect]
     Active Substance: TEDUGLUTIDE
     Dosage: 3.2 MILLIGRAM, OTHER (7 DOSES PER WEEK)
     Route: 065
     Dates: start: 20200218
  29. TEDUGLUTIDE [Suspect]
     Active Substance: TEDUGLUTIDE
     Dosage: 2.6 MILLIGRAM, QD
     Route: 065
     Dates: start: 20200820, end: 202010
  30. TEDUGLUTIDE [Suspect]
     Active Substance: TEDUGLUTIDE
     Dosage: 2.6 MILLIGRAM, QD
     Route: 065
     Dates: start: 20200820, end: 202010
  31. TEDUGLUTIDE [Suspect]
     Active Substance: TEDUGLUTIDE
     Dosage: 3.2 MILLIGRAM, QD
     Route: 065
     Dates: start: 20210412
  32. TEDUGLUTIDE [Suspect]
     Active Substance: TEDUGLUTIDE
     Dosage: 3.2 MILLIGRAM, QD
     Route: 065
     Dates: start: 20210412
  33. TRAMAL [Concomitant]
     Active Substance: TRAMADOL
     Indication: FLANK PAIN
     Dosage: 15 GTT DROPS, TID
     Route: 048
     Dates: start: 20201102
  34. UNACID [Concomitant]
     Indication: INFECTION
     Dosage: 750 MILLIGRAM, BID
     Route: 048
     Dates: start: 20210205, end: 20210209
  35. TEDUGLUTIDE [Suspect]
     Active Substance: TEDUGLUTIDE
     Dosage: 4 MILLIGRAM, OTHER (7 DOSES PER WEEK)
     Route: 065
     Dates: start: 20190311
  36. TEDUGLUTIDE [Suspect]
     Active Substance: TEDUGLUTIDE
     Dosage: 3.8 MILLIGRAM, OTHER (7 DOSES PER WEEK)
     Route: 065
     Dates: start: 201904, end: 20190822
  37. TEDUGLUTIDE [Suspect]
     Active Substance: TEDUGLUTIDE
     Dosage: 3.8 MILLIGRAM, OTHER (4 DOSES PER WEEK)
     Route: 065
     Dates: start: 20190823, end: 20190829
  38. PANTOZOL [Concomitant]
     Active Substance: PANTOPRAZOLE SODIUM
     Indication: PRODUCT USED FOR UNKNOWN INDICATION
     Dosage: 20 MILLIGRAM, QD
     Route: 048
  39. TEDUGLUTIDE [Suspect]
     Active Substance: TEDUGLUTIDE
     Indication: SHORT-BOWEL SYNDROME
     Dosage: 4.25 MILLIGRAM, OTHER (7 DOSES PER WEEK)
     Route: 065
     Dates: start: 20190111, end: 20190310
  40. TEDUGLUTIDE [Suspect]
     Active Substance: TEDUGLUTIDE
     Indication: SHORT-BOWEL SYNDROME
     Dosage: 4.25 MILLIGRAM, OTHER (7 DOSES PER WEEK)
     Route: 065
     Dates: start: 20190111, end: 20190310
  41. TEDUGLUTIDE [Suspect]
     Active Substance: TEDUGLUTIDE
     Dosage: 4 MILLIGRAM, OTHER (7 DOSES PER WEEK)
     Route: 065
     Dates: start: 20190311
  42. TEDUGLUTIDE [Suspect]
     Active Substance: TEDUGLUTIDE
     Dosage: 4 MILLIGRAM, OTHER (7 DOSES PER WEEK)
     Route: 065
     Dates: start: 20190311
  43. TEDUGLUTIDE [Suspect]
     Active Substance: TEDUGLUTIDE
     Dosage: 3.8 MILLIGRAM, OTHER (7 DOSES PER WEEK)
     Route: 065
     Dates: start: 201904, end: 20190822
  44. TEDUGLUTIDE [Suspect]
     Active Substance: TEDUGLUTIDE
     Dosage: 3.8 MILLIGRAM, OTHER (4 DOSES PER WEEK)
     Route: 065
     Dates: start: 20190823, end: 20190829
  45. TEDUGLUTIDE [Suspect]
     Active Substance: TEDUGLUTIDE
     Dosage: 2.5 MILLIGRAM, OTHER (7 DOSES PER WEEK)
     Route: 065
     Dates: start: 20191015, end: 20191027
  46. TEDUGLUTIDE [Suspect]
     Active Substance: TEDUGLUTIDE
     Dosage: 3.5 MILLIGRAM, OTHER (7 DOSES PER WEEK)
     Route: 065
     Dates: start: 20191028, end: 20200214
  47. TEDUGLUTIDE [Suspect]
     Active Substance: TEDUGLUTIDE
     Dosage: 3.2 MILLIGRAM, QD
     Route: 065
     Dates: start: 202010, end: 20210410
  48. TEDUGLUTIDE [Suspect]
     Active Substance: TEDUGLUTIDE
     Dosage: 3.2 MILLIGRAM, QD
     Route: 065
     Dates: start: 20210412
  49. SELENASE [SELENIDE SODIUM] [Concomitant]
     Indication: SELENIUM DEFICIENCY
     Dosage: UNK MILLIGRAM
     Route: 048
  50. TEDUGLUTIDE [Suspect]
     Active Substance: TEDUGLUTIDE
     Dosage: 3.5 MILLIGRAM, OTHER (7 DOSES PER WEEK)
     Route: 065
     Dates: start: 20191028, end: 20200214
  51. TEDUGLUTIDE [Suspect]
     Active Substance: TEDUGLUTIDE
     Dosage: 3.2 MILLIGRAM, OTHER (7 DOSES PER WEEK)
     Route: 065
     Dates: start: 20200218
  52. TEDUGLUTIDE [Suspect]
     Active Substance: TEDUGLUTIDE
     Dosage: 3.2 MILLIGRAM, OTHER (4 DOSES PER WEEK)
     Route: 065
     Dates: start: 20200810, end: 20200819
  53. TEDUGLUTIDE [Suspect]
     Active Substance: TEDUGLUTIDE
     Dosage: 3.2 MILLIGRAM, OTHER (4 DOSES PER WEEK)
     Route: 065
     Dates: start: 20200810, end: 20200819
  54. TEDUGLUTIDE [Suspect]
     Active Substance: TEDUGLUTIDE
     Dosage: 3.2 MILLIGRAM, QD
     Route: 065
     Dates: start: 202010, end: 20210410
  55. TEDUGLUTIDE [Suspect]
     Active Substance: TEDUGLUTIDE
     Dosage: 3.2 MILLIGRAM, QD
     Route: 065
     Dates: start: 202010, end: 20210410
  56. IBUPROFEN. [Concomitant]
     Active Substance: IBUPROFEN
     Indication: ARTHRALGIA
     Route: 065
  57. TEDUGLUTIDE [Suspect]
     Active Substance: TEDUGLUTIDE
     Indication: SHORT-BOWEL SYNDROME
     Dosage: 4.25 MILLIGRAM, OTHER (7 DOSES PER WEEK)
     Route: 065
     Dates: start: 20190111, end: 20190310
  58. TEDUGLUTIDE [Suspect]
     Active Substance: TEDUGLUTIDE
     Dosage: 2 MILLIGRAM, OTHER (7 DOSES PER WEEK)
     Route: 065
     Dates: start: 20190830, end: 20191014
  59. TEDUGLUTIDE [Suspect]
     Active Substance: TEDUGLUTIDE
     Dosage: 3.2 MILLIGRAM, OTHER (7 DOSES PER WEEK)
     Route: 065
     Dates: start: 20200218
  60. DECORTIN [Concomitant]
     Active Substance: PREDNISONE
     Indication: ARTHRALGIA
  61. TRAMAL [Concomitant]
     Active Substance: TRAMADOL
     Dosage: 30 GTT DROPS, TID
     Route: 048
     Dates: start: 20201001, end: 20201101

REACTIONS (4)
  - Catheter site pain [Recovered/Resolved]
  - Selenium deficiency [Recovered/Resolved]
  - Urinary tract infection [Recovered/Resolved]
  - Renal colic [Recovered/Resolved]

NARRATIVE: CASE EVENT DATE: 202008
